FAERS Safety Report 5353867-7 (Version None)
Quarter: 2007Q2

REPORT INFORMATION
  Report Type: 
  Country: None (occurrence: None)
  Receive Date: 20070608
  Receipt Date: 20070525
  Transmission Date: 20071010
  Serious: Yes (Other)
  Sender: FDA-Public Use
  Company Number: 2007S1000234

PATIENT
  Age: 79 Year
  Sex: Female
  Weight: 66.2 kg

DRUGS (19)
  1. CUBICIN [Suspect]
     Indication: CELLULITIS
     Dosage: 5.3 MG/KG; Q48H;
     Dates: start: 20070427
  2. ALLOPURINOL [Concomitant]
  3. SYNTHROID [Concomitant]
  4. ATIVAN [Concomitant]
  5. NEURONTIN [Concomitant]
  6. ISORDIL [Concomitant]
  7. CARVEDILOL [Concomitant]
  8. HYDRALAZINE HCL [Concomitant]
  9. SIMVASTATIN [Concomitant]
  10. FUROSEMIDE [Concomitant]
  11. INSULIN [Concomitant]
  12. PROCRIT [Concomitant]
  13. PHENERGAN /01851401/ [Concomitant]
  14. ZOFRAN [Concomitant]
  15. LORTAB [Concomitant]
  16. POTASSIUM ACETATE [Concomitant]
  17. MULTIVITAMIN [Concomitant]
  18. SPORANOX [Concomitant]
  19. HEPARIN [Concomitant]

REACTIONS (3)
  - BLOOD CREATININE INCREASED [None]
  - HEPARIN-INDUCED THROMBOCYTOPENIA [None]
  - THROMBOCYTOPENIC PURPURA [None]
